FAERS Safety Report 9309769 (Version 1)
Quarter: 2013Q2

REPORT INFORMATION
  Report Type: Spontaneous
  Country: US (occurrence: US)
  Receive Date: 20130525
  Receipt Date: 20130525
  Transmission Date: 20140414
  Serious: No
  Sender: FDA-Public Use
  Company Number: US-BRISTOL-MYERS SQUIBB COMPANY-17483595

PATIENT
  Age: 72 Year
  Sex: Male
  Weight: 117.01 kg

DRUGS (2)
  1. BYDUREON [Suspect]
     Indication: TYPE 2 DIABETES MELLITUS
     Route: 058
  2. METFORMIN [Concomitant]
     Indication: TYPE 2 DIABETES MELLITUS
     Route: 048

REACTIONS (4)
  - Weight decreased [Recovered/Resolved]
  - Nausea [Recovering/Resolving]
  - Dyspepsia [Recovering/Resolving]
  - Diarrhoea [Recovering/Resolving]
